FAERS Safety Report 5424222-6 (Version None)
Quarter: 2007Q3

REPORT INFORMATION
  Report Type: 
  Country: None (occurrence: None)
  Receive Date: 20070726
  Receipt Date: 20060905
  Transmission Date: 20080115
  Serious: Yes (Hospitalization)
  Sender: FDA-Public Use
  Company Number: DRON00207000444

PATIENT
  Sex: Male
  Weight: 63.5 kg

DRUGS (11)
  1. DRONABINOL [Suspect]
     Indication: DECREASED APPETITE
     Dosage: 2.5 MILLIGRAM(S) BID ORAL DAILY DOSE: 5 MILLIGRAM(S)
     Route: 048
     Dates: start: 19911031, end: 19921001
  2. VASOTEC [Concomitant]
  3. DIFLUCAN [Concomitant]
  4. FLOXIN [Concomitant]
  5. ELAVIL [Concomitant]
  6. BACTRIM DS [Concomitant]
  7. INHALED PENTAM (PENTAMIDINE ISETHIONATE) [Concomitant]
  8. HISMANAL [Concomitant]
  9. SELDANE [Concomitant]
  10. NALDECON (GUAIFENESIN) [Concomitant]
  11. TOTAL PACENTERAL NUTRITION (TOTAL PACENTERAL NUTRITION) [Concomitant]

REACTIONS (3)
  - ABDOMINAL INFECTION [None]
  - CYTOMEGALOVIRUS INFECTION [None]
  - MYCOBACTERIUM AVIUM COMPLEX INFECTION [None]
